FAERS Safety Report 7096062-6 (Version None)
Quarter: 2010Q4

REPORT INFORMATION
  Report Type: 
  Country: None (occurrence: None)
  Receive Date: 20101111
  Receipt Date: 20090605
  Transmission Date: 20110411
  Serious: No
  Sender: FDA-Public Use
  Company Number: US-KINGPHARMUSA00001-K200900687

PATIENT
  Sex: Female
  Weight: 86.168 kg

DRUGS (3)
  1. LEVOXYL [Suspect]
     Indication: HYPOTHYROIDISM
     Dosage: 112 MCG, QOD
     Route: 048
     Dates: start: 19890101, end: 20090604
  2. LEVOXYL [Suspect]
     Dosage: 125 MCG, QOD
     Route: 048
     Dates: start: 19890101, end: 20090604
  3. LEVOXYL [Suspect]
     Dosage: 125 MCG, QD
     Route: 048
     Dates: start: 20090605

REACTIONS (1)
  - PALPITATIONS [None]
